FAERS Safety Report 5811508-6 (Version None)
Quarter: 2008Q3

REPORT INFORMATION
  Report Type: 
  Country: None (occurrence: None)
  Receive Date: 20080711
  Receipt Date: 20080711
  Transmission Date: 20090109
  Serious: Yes (Other)
  Sender: FDA-Public Use
  Company Number: None

PATIENT
  Sex: Female
  Weight: 79.3795 kg

DRUGS (2)
  1. CHANTIX [Suspect]
     Indication: SMOKING CESSATION THERAPY
     Dates: start: 20071001, end: 20071101
  2. ABILIFY [Suspect]
     Indication: DEPRESSION
     Dates: start: 20080501

REACTIONS (26)
  - ANXIETY [None]
  - BRUXISM [None]
  - CRYING [None]
  - DEPRESSION [None]
  - DIARRHOEA [None]
  - DIZZINESS [None]
  - DRUG WITHDRAWAL SYNDROME [None]
  - DYSPNOEA [None]
  - FAECAL INCONTINENCE [None]
  - FATIGUE [None]
  - FEELING ABNORMAL [None]
  - FLIGHT OF IDEAS [None]
  - HALLUCINATION [None]
  - HEADACHE [None]
  - HYPERVENTILATION [None]
  - MANIA [None]
  - MEMORY IMPAIRMENT [None]
  - NAUSEA [None]
  - OBSESSIVE THOUGHTS [None]
  - PANIC ATTACK [None]
  - PARANOIA [None]
  - PHARMACEUTICAL PRODUCT COMPLAINT [None]
  - PRESYNCOPE [None]
  - SUICIDAL IDEATION [None]
  - THROAT TIGHTNESS [None]
  - TINNITUS [None]
